FAERS Safety Report 19785279 (Version 2)
Quarter: 2022Q3

REPORT INFORMATION
  Report Type: Spontaneous
  Country: US (occurrence: US)
  Receive Date: 20210903
  Receipt Date: 20220912
  Transmission Date: 20221027
  Serious: Yes (Hospitalization, Other)
  Sender: FDA-Public Use
  Company Number: US-PFIZER INC-2021774001

PATIENT
  Age: 51 Year
  Sex: Male

DRUGS (7)
  1. THIOTHIXENE HYDROCHLORIDE [Suspect]
     Active Substance: THIOTHIXENE HYDROCHLORIDE
     Indication: Schizoaffective disorder
     Dosage: 10 MG, 3X/DAY
     Route: 048
  2. THIOTHIXENE HYDROCHLORIDE [Suspect]
     Active Substance: THIOTHIXENE HYDROCHLORIDE
     Dosage: 10 MG, 2X/DAY
     Route: 048
  3. BENZTROPINE MESYLATE [Suspect]
     Active Substance: BENZTROPINE MESYLATE
     Indication: Schizoaffective disorder
     Dosage: 2 MG, 2X/DAY
     Route: 048
  4. BENZTROPINE MESYLATE [Suspect]
     Active Substance: BENZTROPINE MESYLATE
     Dosage: 2 MG, 1X/DAY (AT BEDTIME)
     Route: 048
  5. LITHIUM CARBONATE [Suspect]
     Active Substance: LITHIUM CARBONATE
     Indication: Schizoaffective disorder
     Dosage: 300 MG, 1X/DAY (EVERY MORNING)
     Route: 048
  6. LITHIUM CARBONATE [Suspect]
     Active Substance: LITHIUM CARBONATE
     Dosage: 600 MG, 1X/DAY
     Route: 048
  7. LORAZEPAM [Concomitant]
     Active Substance: LORAZEPAM
     Indication: Agitation
     Dosage: 2 MG (EVERY TWO HOURS)
     Route: 048

REACTIONS (4)
  - Urinary retention [Recovered/Resolved]
  - Oesophageal atony [Recovered/Resolved]
  - Oesophageal dilatation [Recovered/Resolved]
  - Intestinal dilatation [Recovered/Resolved]
